FAERS Safety Report 5592016-7 (Version None)
Quarter: 2008Q1

REPORT INFORMATION
  Report Type: 
  Country: None (occurrence: None)
  Receive Date: 20080115
  Receipt Date: 20070803
  Transmission Date: 20080703
  Serious: No
  Sender: FDA-Public Use
  Company Number: US-ABBOTT-07P-163-0376808-00

PATIENT
  Sex: Female
  Weight: 82.174 kg

DRUGS (8)
  1. ADVICOR [Suspect]
     Indication: BLOOD CHOLESTEROL INCREASED
     Route: 048
     Dates: start: 20070801
  2. CYCLOBENZAPRINE HCL [Concomitant]
     Indication: BACK PAIN
     Route: 048
     Dates: start: 19850101
  3. CYCLOBENZAPRINE HCL [Concomitant]
     Route: 048
     Dates: start: 19850101
  4. FUROSEMIDE [Concomitant]
     Indication: FLUID RETENTION
     Route: 048
     Dates: start: 20060101
  5. BENAZEPRIL HYDROCHLORIDE [Concomitant]
     Indication: BLOOD PRESSURE
     Route: 048
     Dates: start: 20070101
  6. ATENOLOL [Concomitant]
     Indication: BLOOD PRESSURE
     Route: 048
     Dates: start: 19800101
  7. POTASSIUM CHLORIDE [Concomitant]
     Indication: MINERAL SUPPLEMENTATION
  8. TRAMADOL HCL [Concomitant]
     Indication: BACK PAIN
     Dates: start: 20070601

REACTIONS (2)
  - FLUSHING [None]
  - PRURITUS [None]
